FAERS Safety Report 7911227-6 (Version None)
Quarter: 2011Q4

REPORT INFORMATION
  Report Type: 
  Country: None (occurrence: None)
  Receive Date: 20111110
  Receipt Date: 20111110
  Transmission Date: 20120403
  Serious: Yes (Other)
  Sender: FDA-Public Use
  Company Number: None

PATIENT
  Age: 89 Year
  Sex: Male

DRUGS (2)
  1. PEGASYS [Suspect]
     Dosage: 180MCG ONCE WEEKLY SC
     Route: 058
     Dates: start: 20110802, end: 20110825
  2. RIBASPHERE [Suspect]
     Dosage: 1000MG DAILY PO
     Route: 048
     Dates: start: 20110802, end: 20110825

REACTIONS (1)
  - RASH [None]
